FAERS Safety Report 6850545-X (Version None)
Quarter: 2010Q3

REPORT INFORMATION
  Report Type: 
  Country: None (occurrence: None)
  Receive Date: 20100716
  Receipt Date: 20081105
  Transmission Date: 20110219
  Serious: Yes (Other)
  Sender: FDA-Public Use
  Company Number: US-PFIZER INC-2007086331

PATIENT
  Sex: Female
  Weight: 52.2 kg

DRUGS (3)
  1. CHANTIX [Suspect]
     Indication: SMOKING CESSATION THERAPY
     Dates: start: 20070101, end: 20070301
  2. ALL OTHER THERAPEUTIC PRODUCTS [Concomitant]
  3. EFFEXOR [Concomitant]

REACTIONS (2)
  - MULTIPLE SCLEROSIS [None]
  - WEIGHT INCREASED [None]
